FAERS Safety Report 23884449 (Version 3)
Quarter: 2024Q3

REPORT INFORMATION
  Report Type: Spontaneous
  Country: JP (occurrence: JP)
  Receive Date: 20240522
  Receipt Date: 20240702
  Transmission Date: 20241017
  Serious: Yes (Death, Hospitalization, Other)
  Sender: EXELIXIS
  Company Number: JP-TAKEDA-2024TJP007187

PATIENT
  Age: 88 Year
  Sex: Male

DRUGS (3)
  1. CABOMETYX [Suspect]
     Active Substance: CABOZANTINIB S-MALATE
     Indication: Renal cell carcinoma
     Dosage: UNK MILLIGRAM
     Route: 048
     Dates: start: 20240102, end: 20240207
  2. CABOMETYX [Suspect]
     Active Substance: CABOZANTINIB S-MALATE
     Dosage: UNK, QOD
     Route: 048
     Dates: start: 20240208, end: 202404
  3. CABOMETYX [Suspect]
     Active Substance: CABOZANTINIB S-MALATE
     Dosage: UNK, Q72H
     Route: 048
     Dates: start: 202404

REACTIONS (3)
  - Thyroiditis [Recovered/Resolved]
  - Pneumonia [Fatal]
  - Hypertension [Recovering/Resolving]

NARRATIVE: CASE EVENT DATE: 20240208
